FAERS Safety Report 9801288 (Version 1)
Quarter: 2014Q1

REPORT INFORMATION
  Report Type: Spontaneous
  Country: US (occurrence: US)
  Receive Date: 20140107
  Receipt Date: 20140107
  Transmission Date: 20141002
  Serious: No
  Sender: FDA-Public Use
  Company Number: US-GLAXOSMITHKLINE-A1042868A

PATIENT
  Age: 61 Year
  Sex: Female

DRUGS (2)
  1. BENLYSTA [Suspect]
     Indication: AUTOIMMUNE DISORDER
     Dosage: 120MG CYCLIC
     Route: 042
     Dates: start: 20110823
  2. RITUXAN [Concomitant]

REACTIONS (1)
  - Drug ineffective [Unknown]
